FAERS Safety Report 8139267-5 (Version None)
Quarter: 2012Q1

REPORT INFORMATION
  Report Type: 
  Country: None (occurrence: None)
  Receive Date: 20120215
  Receipt Date: 20120208
  Transmission Date: 20120608
  Serious: Yes (Hospitalization)
  Sender: FDA-Public Use
  Company Number: US-BAYER-2011-069148

PATIENT
  Age: 75 Year
  Sex: Male
  Weight: 82 kg

DRUGS (3)
  1. METOPROLOL TARTRATE [Concomitant]
  2. SARGRAMOSTIM [Suspect]
     Indication: MALIGNANT MELANOMA
     Dosage: 250 ?G/D, ON DAYS 1-14 OF A CYCLE OF 21 DAYS
     Route: 058
     Dates: start: 20110613
  3. MDX-010 [Suspect]
     Indication: MALIGNANT MELANOMA
     Dosage: 10 MG/KG, ON DAY 1 OF A 21 DAY CYCLE
     Dates: start: 20110705

REACTIONS (3)
  - HYPONATRAEMIA [None]
  - HYPOTENSION [None]
  - DEHYDRATION [None]
